FAERS Safety Report 4433739-2 (Version None)
Quarter: 2004Q3

REPORT INFORMATION
  Report Type: 
  Country: None (occurrence: None)
  Receive Date: 20040824
  Receipt Date: 20040820
  Transmission Date: 20050211
  Serious: Yes (Hospitalization)
  Sender: FDA-Public Use
  Company Number: TCI2004A02304

PATIENT
  Age: 43 Year
  Sex: Female

DRUGS (2)
  1. LEUPROLIDE ACETATE [Suspect]
     Indication: DEGENERATION OF UTERINE FIBROID
     Dosage: 1.88 MG (1.88 MG, 1 IN 28 D)
     Route: 058
     Dates: start: 20031215, end: 20040209
  2. LEUPROLIDE ACETATE [Suspect]
     Indication: DEGENERATION OF UTERINE FIBROID
     Dosage: 3.75 MG (3.75 MG, 1 IN 28 D)
     Route: 058
     Dates: start: 20030924, end: 20031117

REACTIONS (3)
  - HAEMORRHAGE [None]
  - HYDROMETRA [None]
  - HYSTERECTOMY [None]
